FAERS Safety Report 7633523-2 (Version None)
Quarter: 2011Q3

REPORT INFORMATION
  Report Type: 
  Country: None (occurrence: None)
  Receive Date: 20110718
  Receipt Date: 20110422
  Transmission Date: 20111222
  Serious: Yes (Other)
  Sender: FDA-Public Use
  Company Number: 1-0411-46

PATIENT
  Sex: Female

DRUGS (2)
  1. ORIGINS COSMETICS FOR SENSITIVE SKIN [Concomitant]
  2. DERMA-SMOOTHE/FS [Suspect]
     Dosage: TOPICAL
     Route: 061

REACTIONS (1)
  - DRUG HYPERSENSITIVITY [None]
